FAERS Safety Report 15420362 (Version 2)
Quarter: 2018Q3

REPORT INFORMATION
  Report Type: Spontaneous
  Country: NL (occurrence: NL)
  Receive Date: 20180924
  Receipt Date: 20180928
  Transmission Date: 20181010
  Serious: Yes (Life-Threatening, Hospitalization, Other)
  Sender: FDA-Public Use
  Company Number: NL-SA-2018SA261234

PATIENT
  Age: 61 Year
  Sex: Female

DRUGS (6)
  1. BROMAZEPAM [Suspect]
     Active Substance: BROMAZEPAM
     Dosage: 270 MG, TOTAL
     Route: 048
  2. FLUOXETINE [Suspect]
     Active Substance: FLUOXETINE HYDROCHLORIDE
     Dosage: 139 DF, TOTAL
     Route: 048
  3. RISPERIDONE. [Suspect]
     Active Substance: RISPERIDONE
     Dosage: 6 DF, TOTAL
     Route: 048
  4. ZOLPIDEM TARTRATE. [Suspect]
     Active Substance: ZOLPIDEM TARTRATE
     Dosage: 40 DF, TOTAL
     Route: 048
  5. NAPROXEN. [Suspect]
     Active Substance: NAPROXEN
     Dosage: 20 DF, TOTAL
     Route: 048
  6. CLEMASTINE [Suspect]
     Active Substance: CLEMASTINE
     Dosage: 5 DF, TOTAL
     Route: 048

REACTIONS (17)
  - Electrocardiogram QT prolonged [Recovered/Resolved]
  - Circulatory collapse [Recovered/Resolved]
  - Intentional overdose [Unknown]
  - Microcytic anaemia [Unknown]
  - Pulmonary vascular disorder [Recovered/Resolved]
  - Somnolence [Recovered/Resolved]
  - Coordination abnormal [Unknown]
  - Neurological symptom [Unknown]
  - Toxicity to various agents [Unknown]
  - Hypermagnesaemia [Unknown]
  - Fall [Recovered/Resolved]
  - Leukocytosis [Unknown]
  - Torsade de pointes [Recovered/Resolved]
  - Hypocalcaemia [Unknown]
  - Arrhythmia [Recovered/Resolved]
  - Cardiac output decreased [Recovered/Resolved]
  - Serum ferritin decreased [Unknown]
